FAERS Safety Report 8517561-3 (Version None)
Quarter: 2012Q3

REPORT INFORMATION
  Report Type: 
  Country: None (occurrence: None)
  Receive Date: 20120718
  Receipt Date: 20120705
  Transmission Date: 20120928
  Serious: Yes (Other)
  Sender: FDA-Public Use
  Company Number: US-ROCHE-1084992

PATIENT
  Age: 80 Year
  Sex: Female
  Weight: 83.99 kg

DRUGS (1)
  1. XELODA [Suspect]
     Indication: COLON CANCER
     Route: 048
     Dates: start: 20120330

REACTIONS (2)
  - STOMATITIS [None]
  - CARPAL TUNNEL DECOMPRESSION [None]
